FAERS Safety Report 5983280-0 (Version None)
Quarter: 2008Q4

REPORT INFORMATION
  Report Type: 
  Country: None (occurrence: None)
  Receive Date: 20081208
  Receipt Date: 20080416
  Transmission Date: 20090506
  Serious: No
  Sender: FDA-Public Use
  Company Number: US-BAYER-200811725BCC

PATIENT
  Age: 56 Year
  Sex: Female
  Weight: 66 kg

DRUGS (2)
  1. ALEVE [Suspect]
     Indication: PYREXIA
     Dosage: TOTAL DAILY DOSE: 440 MG  UNIT DOSE: 220 MG
     Route: 048
     Dates: start: 20080416
  2. AMOXICILLIN [Concomitant]
     Route: 065

REACTIONS (3)
  - GINGIVAL SWELLING [None]
  - NERVOUSNESS [None]
  - SOMNOLENCE [None]
